FAERS Safety Report 19265255 (Version 1)
Quarter: 2021Q2

REPORT INFORMATION
  Report Type: Spontaneous
  Country: US (occurrence: US)
  Receive Date: 20210517
  Receipt Date: 20210517
  Transmission Date: 20210717
  Serious: No
  Sender: FDA-Public Use
  Company Number: US-TEVA-2021-US-1909045

PATIENT
  Age: 50 Year
  Sex: Female

DRUGS (1)
  1. ESTRADIOL TEVA [Suspect]
     Active Substance: ESTRADIOL
     Route: 065

REACTIONS (6)
  - Nausea [Unknown]
  - Mood swings [Unknown]
  - Headache [Unknown]
  - Weight increased [Unknown]
  - Feeling abnormal [Unknown]
  - Tearfulness [Unknown]
